FAERS Safety Report 8997443 (Version 2)
Quarter: 2013Q1

REPORT INFORMATION
  Report Type: Spontaneous
  Country: US (occurrence: US)
  Receive Date: 20130104
  Receipt Date: 20130213
  Transmission Date: 20140127
  Serious: Yes (Other)
  Sender: FDA-Public Use
  Company Number: US-PFIZER INC-2013001862

PATIENT
  Age: 66 Year
  Sex: Female
  Weight: 90.7 kg

DRUGS (7)
  1. REVATIO [Suspect]
     Indication: PULMONARY HYPERTENSION
     Dosage: 1 DF, 3X/DAY
     Route: 048
  2. METFORMIN [Concomitant]
     Indication: DIABETES MELLITUS
     Dosage: UNK
  3. DIGOXIN [Concomitant]
     Indication: CARDIAC DISORDER
     Dosage: UNK
  4. HYDROCHLOROTHIAZIDE WITH TRIAMTERENE [Concomitant]
     Dosage: UNK
  5. TRACLEER [Concomitant]
     Dosage: 125 MG, 2X/DAY
  6. WARFARIN [Concomitant]
     Dosage: 5 MG, UNK
  7. TYVASO [Concomitant]
     Dosage: UNK
     Route: 055

REACTIONS (1)
  - Pneumonia [Unknown]
